FAERS Safety Report 12289104 (Version 1)
Quarter: 2016Q2

REPORT INFORMATION
  Report Type: Report from Study
  Country: US (occurrence: US)
  Receive Date: 20160421
  Receipt Date: 20160421
  Transmission Date: 20160815
  Serious: No
  Sender: FDA-Public Use
  Company Number: US-AMGEN-USASL2016047910

PATIENT
  Age: 64 Year
  Sex: Female

DRUGS (1)
  1. ENBREL [Suspect]
     Active Substance: ETANERCEPT
     Indication: PRODUCT USED FOR UNKNOWN INDICATION
     Dosage: UNK
     Route: 065

REACTIONS (9)
  - Hand deformity [Unknown]
  - Nodule [Unknown]
  - Asthenia [Unknown]
  - Limb deformity [Unknown]
  - Muscular weakness [Unknown]
  - Injection site pain [Unknown]
  - Foot deformity [Unknown]
  - Ankle deformity [Unknown]
  - Arthralgia [Unknown]
